FAERS Safety Report 8720896 (Version 2)
Quarter: 2013Q4

REPORT INFORMATION
  Report Type: Spontaneous
  Country: JP (occurrence: JP)
  Receive Date: 20120813
  Receipt Date: 20131231
  Transmission Date: 20140711
  Serious: Yes (Hospitalization)
  Sender: FDA-Public Use
  Company Number: JP-GLAXOSMITHKLINE-B0820546A

PATIENT
  Age: 30 Year
  Sex: Female

DRUGS (1)
  1. LAMICTAL [Suspect]
     Indication: BIPOLAR DISORDER
     Dosage: 25MG PER DAY
     Route: 048
     Dates: start: 20111109, end: 20111205

REACTIONS (21)
  - Pancytopenia [Recovered/Resolved]
  - Pancytopenia [Recovered/Resolved]
  - Histiocytosis haematophagic [Unknown]
  - Rash [Recovered/Resolved]
  - Conjunctival hyperaemia [Unknown]
  - Lymphadenopathy [Unknown]
  - Generalised erythema [Unknown]
  - Hepatic function abnormal [Unknown]
  - Hyperthermia [Recovered/Resolved]
  - White blood cell count decreased [Unknown]
  - Alanine aminotransferase increased [Unknown]
  - Gamma-glutamyltransferase increased [Unknown]
  - Haemoglobin decreased [Unknown]
  - Platelet count decreased [Unknown]
  - Serum ferritin increased [Unknown]
  - Malaise [Unknown]
  - Lip erosion [Unknown]
  - Neutrophil count decreased [Unknown]
  - Rash maculo-papular [Unknown]
  - Conjunctival hyperaemia [Unknown]
  - Pyrexia [Recovered/Resolved]
